FAERS Safety Report 20929208 (Version 5)
Quarter: 2022Q4

REPORT INFORMATION
  Report Type: Report from Study
  Country: BR (occurrence: BR)
  Receive Date: 20220608
  Receipt Date: 20221230
  Transmission Date: 20230113
  Serious: Yes (Death, Other)
  Sender: FDA-Public Use
  Company Number: BR-NOVARTISPH-NVSC2022BR063661

PATIENT
  Age: 54 Year
  Sex: Female
  Weight: 89 kg

DRUGS (5)
  1. FEMARA [Suspect]
     Active Substance: LETROZOLE
     Indication: Product used for unknown indication
     Dosage: UNK
     Route: 065
     Dates: start: 20200601, end: 20220217
  2. KISQALI [Suspect]
     Active Substance: RIBOCICLIB
     Indication: Product used for unknown indication
     Dosage: UNK
     Route: 065
  3. ZOMETA [Suspect]
     Active Substance: ZOLEDRONIC ACID
     Indication: Product used for unknown indication
     Dosage: UNK
     Route: 065
  4. PIQRAY [Suspect]
     Active Substance: ALPELISIB
     Indication: Product used for unknown indication
     Dosage: UNK
     Route: 065
  5. METFORMIN [Concomitant]
     Active Substance: METFORMIN HYDROCHLORIDE
     Indication: Product used for unknown indication
     Dosage: UNK
     Route: 065

REACTIONS (22)
  - Hepatic failure [Fatal]
  - Disease progression [Fatal]
  - Liver injury [Unknown]
  - Metastases to bone [Unknown]
  - Rebound effect [Unknown]
  - Weight increased [Recovering/Resolving]
  - Glossodynia [Unknown]
  - Pain [Unknown]
  - Flatulence [Unknown]
  - Liver disorder [Recovered/Resolved]
  - Ill-defined disorder [Not Recovered/Not Resolved]
  - Disease recurrence [Unknown]
  - Parosmia [Not Recovered/Not Resolved]
  - Mobility decreased [Recovering/Resolving]
  - Swelling [Recovered/Resolved]
  - Abdominal discomfort [Recovered/Resolved]
  - Feeding disorder [Unknown]
  - Weight decreased [Unknown]
  - Malaise [Unknown]
  - Vomiting [Unknown]
  - Dyspepsia [Unknown]
  - Abdominal pain upper [Unknown]

NARRATIVE: CASE EVENT DATE: 20220401
